FAERS Safety Report 6713189-6 (Version None)
Quarter: 2010Q2

REPORT INFORMATION
  Report Type: 
  Country: None (occurrence: None)
  Receive Date: 20100506
  Receipt Date: 20100423
  Transmission Date: 20101027
  Serious: Yes (Other)
  Sender: FDA-Public Use
  Company Number: PHHY2010GB19882

PATIENT
  Sex: Female

DRUGS (10)
  1. RASILEZ [Suspect]
     Indication: HYPERTENSION
     Dosage: UNK
     Route: 048
     Dates: start: 20100225
  2. FELODIPINE [Concomitant]
  3. CLENIL [Concomitant]
  4. RAMIPRIL [Concomitant]
  5. NAPROXEN [Concomitant]
     Route: 048
  6. BENDROFLUMETHIAZIDE [Concomitant]
     Route: 048
  7. SALMETEROL [Concomitant]
  8. SITAGLIPTIN [Concomitant]
     Route: 048
  9. HYOSCINE [Concomitant]
     Route: 048
  10. AMITRIPTYLINE HYDROCHLORIDE [Concomitant]
     Route: 048

REACTIONS (2)
  - BLOOD POTASSIUM INCREASED [None]
  - HYPONATRAEMIA [None]
